FAERS Safety Report 4340926-0 (Version None)
Quarter: 2004Q2

REPORT INFORMATION
  Report Type: 
  Country: None (occurrence: None)
  Receive Date: 20040413
  Receipt Date: 20040331
  Transmission Date: 20050107
  Serious: Yes (Hospitalization)
  Sender: FDA-Public Use
  Company Number: 2004207466FR

PATIENT
  Age: 54 Year
  Sex: Male

DRUGS (7)
  1. SOLU-MEDROL [Suspect]
     Indication: TRANSPLANT REJECTION
     Dosage: SEE IMAGE
     Route: 042
     Dates: start: 19940513, end: 19940513
  2. SOLU-MEDROL [Suspect]
     Indication: TRANSPLANT REJECTION
     Dosage: SEE IMAGE
     Route: 042
     Dates: start: 19940515, end: 19940515
  3. SOLU-MEDROL [Suspect]
     Indication: TRANSPLANT REJECTION
     Dosage: SEE IMAGE
     Route: 042
     Dates: start: 19940526, end: 19940527
  4. SOLU-MEDROL [Suspect]
     Indication: TRANSPLANT REJECTION
     Dosage: SEE IMAGE
     Route: 042
     Dates: start: 19940528, end: 19940528
  5. SOLU-MEDROL [Suspect]
     Indication: TRANSPLANT REJECTION
     Dosage: SEE IMAGE
     Route: 042
     Dates: start: 19940616, end: 19940616
  6. SOLU-MEDROL [Suspect]
     Indication: TRANSPLANT REJECTION
     Dosage: SEE IMAGE
     Route: 042
     Dates: start: 19940617, end: 19940617
  7. SOLU-MEDROL [Suspect]
     Indication: TRANSPLANT REJECTION
     Dosage: SEE IMAGE
     Route: 042
     Dates: start: 19940620, end: 19940620

REACTIONS (3)
  - ANGINA UNSTABLE [None]
  - CORONARY ARTERY STENOSIS [None]
  - MYOCARDIAL ISCHAEMIA [None]
